FAERS Safety Report 7389485-9 (Version None)
Quarter: 2011Q2

REPORT INFORMATION
  Report Type: 
  Country: None (occurrence: None)
  Receive Date: 20110401
  Receipt Date: 20110105
  Transmission Date: 20111010
  Serious: Yes (Life-Threatening, Hospitalization)
  Sender: FDA-Public Use
  Company Number: JP-BAYER-201013294BYL

PATIENT
  Sex: Female
  Weight: 54 kg

DRUGS (4)
  1. NEXAVAR [Suspect]
     Indication: METASTASES TO LUNG
  2. LOXOPROFEN [Concomitant]
     Indication: ANALGESIC THERAPY
     Route: 048
     Dates: start: 20100301
  3. NEXAVAR [Suspect]
     Indication: RENAL CANCER
     Dosage: 400 MG, BID
     Route: 048
     Dates: start: 20100614, end: 20100626
  4. LOXOPROFEN [Concomitant]

REACTIONS (3)
  - INTERSTITIAL LUNG DISEASE [None]
  - STEVENS-JOHNSON SYNDROME [None]
  - PALMAR-PLANTAR ERYTHRODYSAESTHESIA SYNDROME [None]
